FAERS Safety Report 26207584 (Version 1)
Quarter: 2025Q4

REPORT INFORMATION
  Report Type: Spontaneous
  Country: JP (occurrence: JP)
  Receive Date: 20251229
  Receipt Date: 20251229
  Transmission Date: 20260118
  Serious: Yes (Hospitalization, Other)
  Sender: ALEXION PHARMACEUTICALS
  Company Number: JP-AstraZeneca-CH-00997952A

PATIENT
  Sex: Female

DRUGS (5)
  1. TAGRISSO [Suspect]
     Active Substance: OSIMERTINIB
     Indication: Non-small cell lung cancer
     Dosage: 80 MILLIGRAM, QD
     Route: 061
     Dates: start: 20251110
  2. CARBOPLATIN [Suspect]
     Active Substance: CARBOPLATIN
     Dosage: 20 MILLIGRAM, QD
     Route: 065
  3. CARBOPLATIN [Suspect]
     Active Substance: CARBOPLATIN
     Dosage: 10 MILLIGRAM, QD
     Route: 065
  4. PEMETREXED [Suspect]
     Active Substance: PEMETREXED
     Dosage: 20 MILLIGRAM, QD
     Route: 065
  5. PEMETREXED [Suspect]
     Active Substance: PEMETREXED
     Dosage: 10 MILLIGRAM, QD
     Route: 065

REACTIONS (2)
  - Rash [Unknown]
  - Oral disorder [Unknown]

NARRATIVE: CASE EVENT DATE: 20251119
